FAERS Safety Report 16268539 (Version 1)
Quarter: 2019Q2

REPORT INFORMATION
  Report Type: Report from Study
  Country: None (occurrence: KR)
  Receive Date: 20190503
  Receipt Date: 20190503
  Transmission Date: 20190711
  Serious: Yes (Death)
  Sender: FDA-Public Use
  Company Number: KR-UNICHEM PHARMACEUTICALS (USA) INC-UCM201904-000148

PATIENT

DRUGS (1)
  1. DIVALPROEX SODIUM. [Suspect]
     Active Substance: DIVALPROEX SODIUM

REACTIONS (2)
  - Stevens-Johnson syndrome [Fatal]
  - Toxic epidermal necrolysis [Fatal]
